FAERS Safety Report 13169739 (Version 1)
Quarter: 2017Q1

REPORT INFORMATION
  Report Type: Not Available
  Country: CA (occurrence: CA)
  Receive Date: 20170131
  Receipt Date: 20170131
  Transmission Date: 20170428
  Serious: Yes (Other)
  Sender: FDA-Public Use
  Company Number: CA-PURDUE PHARMA-CAN-2017-0007362

PATIENT
  Age: 19 Year

DRUGS (2)
  1. OXYCODONE HYDROCHLORIDE. [Suspect]
     Active Substance: OXYCODONE HYDROCHLORIDE
     Indication: PRODUCT USED FOR UNKNOWN INDICATION
     Dosage: 10 MG, UNK
     Route: 065
  2. TRAMCET [Suspect]
     Active Substance: ACETAMINOPHEN\TRAMADOL
     Indication: ARTHRALGIA
     Route: 048

REACTIONS (2)
  - Seizure [Recovered/Resolved]
  - Electroencephalogram abnormal [Recovered/Resolved]
